FAERS Safety Report 9384007 (Version 2)
Quarter: 2013Q3

REPORT INFORMATION
  Report Type: Spontaneous
  Country: GB (occurrence: GB)
  Receive Date: 20130705
  Receipt Date: 20130718
  Transmission Date: 20140515
  Serious: Yes (Hospitalization)
  Sender: FDA-Public Use
  Company Number: GB-009507513-1307GBR000247

PATIENT
  Sex: Female

DRUGS (1)
  1. IMPLANON [Suspect]
     Dosage: UNK
     Route: 059
     Dates: start: 20101115

REACTIONS (4)
  - Appendicitis [Unknown]
  - Haemorrhage [Unknown]
  - Ovulation induction [Unknown]
  - Drug ineffective [Unknown]
